FAERS Safety Report 24156411 (Version 3)
Quarter: 2024Q3

REPORT INFORMATION
  Report Type: Spontaneous
  Country: DE (occurrence: DE)
  Receive Date: 20240731
  Receipt Date: 20240905
  Transmission Date: 20241016
  Serious: No
  Sender: PFIZER
  Company Number: DE-PFIZER INC-202400224695

PATIENT
  Age: 10 Year
  Sex: Male

DRUGS (1)
  1. ENBREL [Suspect]
     Active Substance: BENZYL ALCOHOL\ETANERCEPT
     Dosage: 25 MG, WEEKLY

REACTIONS (1)
  - Liquid product physical issue [Recovered/Resolved]

NARRATIVE: CASE EVENT DATE: 20240702
